FAERS Safety Report 20718835 (Version 1)
Quarter: 2022Q2

REPORT INFORMATION
  Report Type: Spontaneous
  Country: SK (occurrence: SK)
  Receive Date: 20220418
  Receipt Date: 20220418
  Transmission Date: 20220721
  Serious: Yes (Other)
  Sender: FDA-Public Use
  Company Number: SK-SA-SAC20220405001063

PATIENT
  Age: 34 Year
  Sex: Male

DRUGS (1)
  1. INSULIN GLARGINE [Suspect]
     Active Substance: INSULIN GLARGINE
     Indication: Type 1 diabetes mellitus
     Dosage: UNK UNK, UNKNOWN
     Route: 065
     Dates: start: 201810, end: 202103

REACTIONS (4)
  - Blood glucose increased [Unknown]
  - Blood glucose fluctuation [Recovering/Resolving]
  - Muscle spasms [Recovering/Resolving]
  - Hypoglycaemia [Unknown]
